FAERS Safety Report 9277303 (Version 1)
Quarter: 2013Q2

REPORT INFORMATION
  Report Type: Spontaneous
  Country: US (occurrence: None)
  Receive Date: 20130502
  Receipt Date: 20130502
  Transmission Date: 20140414
  Serious: Yes (Other)
  Sender: FDA-Public Use
  Company Number: None

PATIENT
  Age: 31 Year
  Sex: Female
  Weight: 77.11 kg

DRUGS (2)
  1. ZYPREXA ZYDIS [Suspect]
     Indication: BIPOLAR DISORDER
     Dosage: 10 + 20 MG ?EARLY APRIL
  2. GEODON [Suspect]
     Dosage: GEODON  60MG ONE BID?EARLY APRIL

REACTIONS (4)
  - Dyspnoea [None]
  - Sensation of foreign body [None]
  - Illusion [None]
  - Respiratory disorder [None]
